FAERS Safety Report 8393340-5 (Version None)
Quarter: 2012Q2

REPORT INFORMATION
  Report Type: 
  Country: None (occurrence: None)
  Receive Date: 20120529
  Receipt Date: 20120525
  Transmission Date: 20120825
  Serious: Yes (Other)
  Sender: FDA-Public Use
  Company Number: US-PURDUE-USA-2012-0087586

PATIENT
  Age: 35 Year
  Sex: Female

DRUGS (9)
  1. METHAMPHETAMINE HYDROCHLORIDE [Suspect]
     Indication: ACCIDENTAL EXPOSURE
  2. TRAMADOL HCL [Suspect]
     Indication: BACK PAIN
  3. ALPRAZOLAM [Suspect]
     Indication: ACCIDENTAL EXPOSURE
  4. NORDIAZEPAM [Suspect]
     Indication: ACCIDENTAL EXPOSURE
  5. TRAMADOL HCL [Suspect]
     Indication: NECK PAIN
  6. CLONAZEPAM [Suspect]
     Indication: ACCIDENTAL EXPOSURE
  7. VALIUM [Suspect]
     Indication: NECK PAIN
  8. PROPOXYPHENE HYDROCHLORIDE [Suspect]
     Indication: ACCIDENTAL EXPOSURE
  9. VALIUM [Suspect]
     Indication: BACK PAIN

REACTIONS (5)
  - ACCIDENTAL EXPOSURE [None]
  - EXCORIATION [None]
  - CONTUSION [None]
  - VICTIM OF SEXUAL ABUSE [None]
  - EYE HAEMORRHAGE [None]
